FAERS Safety Report 10130158 (Version 2)
Quarter: 2015Q1

REPORT INFORMATION
  Report Type: Other
  Country: US (occurrence: US)
  Receive Date: 20140428
  Receipt Date: 20150212
  Transmission Date: 20150720
  Serious: Yes (Hospitalization, Other)
  Sender: FDA-Public Use
  Company Number: US-GSKPPD-2014GSK032031

PATIENT
  Age: 53 Year
  Sex: Female

DRUGS (5)
  1. HCTZ [Concomitant]
     Active Substance: HYDROCHLOROTHIAZIDE
  2. ASPIRIN. [Concomitant]
     Active Substance: ASPIRIN
     Dosage: UNIT DOSE, ONE TABLET
  3. TOPROL XL [Concomitant]
     Active Substance: METOPROLOL SUCCINATE
  4. AVANDIA [Suspect]
     Active Substance: ROSIGLITAZONE MALEATE
     Indication: DIABETES MELLITUS
     Dosage: AVANDIA WAS NOT LISTED AMONG THE PATIENTS RECORDS REVIEWED
     Route: 048
  5. ACCUPRIL [Concomitant]
     Active Substance: QUINAPRIL HYDROCHLORIDE

REACTIONS (1)
  - Myocardial infarction [Recovered/Resolved]

NARRATIVE: CASE EVENT DATE: 20050318
